FAERS Safety Report 16661139 (Version 1)
Quarter: 2019Q3

REPORT INFORMATION
  Report Type: Spontaneous
  Country: US (occurrence: US)
  Receive Date: 20190801
  Receipt Date: 20190801
  Transmission Date: 20191004
  Serious: Yes (Disabling)
  Sender: FDA-Public Use
  Company Number: None

PATIENT
  Age: 66 Year
  Sex: Female
  Weight: 63 kg

DRUGS (3)
  1. EZETIMIBE 10 MG TABLET [Suspect]
     Active Substance: EZETIMIBE
     Indication: BLOOD CHOLESTEROL
     Dosage: ?          QUANTITY:1 TABLET(S);?
     Route: 048
     Dates: start: 20190426, end: 20190530
  2. CITACAL MAXIMUM [Concomitant]
  3. CENTRUM SILVER [Concomitant]
     Active Substance: MINERALS\VITAMINS

REACTIONS (2)
  - Renal cyst [None]
  - Middle insomnia [None]

NARRATIVE: CASE EVENT DATE: 20190517
